FAERS Safety Report 5215785-4 (Version None)
Quarter: 2007Q1

REPORT INFORMATION
  Report Type: 
  Country: None (occurrence: None)
  Receive Date: 20070123
  Receipt Date: 20070118
  Transmission Date: 20070707
  Serious: Yes (Life-Threatening)
  Sender: FDA-Public Use
  Company Number: 2007UW01248

PATIENT
  Age: 73 Year
  Sex: Male

DRUGS (15)
  1. CRESTOR [Suspect]
     Route: 048
     Dates: end: 20070118
  2. ZESTRIL [Suspect]
     Route: 048
     Dates: end: 20070118
  3. DIOVAN HCT [Suspect]
     Dosage: 12.5/160
  4. IMDUR [Suspect]
  5. TEMAZEPAM [Suspect]
  6. VISTARIL [Suspect]
  7. ACETAMINOPHEN [Concomitant]
  8. CODEINE PHOS. [Concomitant]
     Dosage: 12MG/5ML
  9. ASPIRIN [Concomitant]
  10. COREG [Concomitant]
  11. FUROSEMIDE [Concomitant]
  12. HUMULIN N [Concomitant]
  13. HUMULIN 70/30 [Concomitant]
  14. KLOR-CON [Concomitant]
  15. PLAVIX [Concomitant]

REACTIONS (3)
  - HEPATIC ENZYME INCREASED [None]
  - JAUNDICE [None]
  - STENT PLACEMENT [None]
